FAERS Safety Report 8511607-4 (Version None)
Quarter: 2012Q3

REPORT INFORMATION
  Report Type: 
  Country: None (occurrence: None)
  Receive Date: 20120716
  Receipt Date: 20120709
  Transmission Date: 20120928
  Serious: Yes (Hospitalization, Other)
  Sender: FDA-Public Use
  Company Number: PHHY2012FR059390

PATIENT
  Sex: Male

DRUGS (10)
  1. VOLTAREN [Suspect]
     Indication: OSTEOARTHRITIS
     Dosage: 1 DF, DAILY
     Route: 048
     Dates: start: 20120316, end: 20120320
  2. SYMBICORT [Concomitant]
     Indication: CHRONIC OBSTRUCTIVE PULMONARY DISEASE
     Dosage: 1 DF, BID (INHALED TWICE A DAY MORNING AND EVENING)
  3. FUROSEMIDE [Concomitant]
     Indication: HYPERTENSION
     Dosage: 60 MG, ONCE A DAY IN THE MORNING
     Route: 048
  4. NITRODERM [Concomitant]
     Dates: end: 20120320
  5. ALFUZOSIN HCL [Concomitant]
     Dosage: 10 MG, ONCE A DAY IN THE EVENING
     Route: 048
  6. AMITRIPTYLINE HCL [Concomitant]
     Dosage: 15 DRP IN THE EVENING
     Route: 048
  7. LANSOPRAZOLE [Concomitant]
     Dosage: 15 MG, ONCE A DAY
     Dates: end: 20120520
  8. ALLOPURINOL [Concomitant]
     Dosage: 1 DF, QD
     Route: 048
     Dates: end: 20120320
  9. ACETAMINOPHEN [Concomitant]
     Dosage: PRN
     Route: 048
  10. VALSARTAN [Concomitant]
     Indication: HYPERTENSION
     Dosage: 1 DF, BID
     Route: 048
     Dates: end: 20120520

REACTIONS (12)
  - FALL [None]
  - BLOOD CREATININE INCREASED [None]
  - HYPOTENSION [None]
  - BLOOD UREA INCREASED [None]
  - MALAISE [None]
  - GASTROINTESTINAL ULCER [None]
  - MELAENA [None]
  - ANAEMIA [None]
  - GASTRITIS [None]
  - HAEMATEMESIS [None]
  - GASTROINTESTINAL HAEMORRHAGE [None]
  - CARDIAC FAILURE [None]
